FAERS Safety Report 24443586 (Version 1)
Quarter: 2024Q4

REPORT INFORMATION
  Report Type: Report from Study
  Country: HN (occurrence: HN)
  Receive Date: 20241016
  Receipt Date: 20241016
  Transmission Date: 20250114
  Serious: Yes (Other)
  Sender: NOVARTIS
  Company Number: HN-002147023-NVSC2024HN201157

PATIENT
  Sex: Male

DRUGS (1)
  1. EXFORGE HCT [Suspect]
     Active Substance: AMLODIPINE BESYLATE\HYDROCHLOROTHIAZIDE\VALSARTAN
     Indication: Hypertension
     Dosage: UNK, QD (10/160/25 MG)
     Route: 048

REACTIONS (3)
  - Blood uric acid abnormal [Recovered/Resolved]
  - Gait disturbance [Recovered/Resolved]
  - Exercise tolerance decreased [Recovered/Resolved]
